FAERS Safety Report 7200526-1 (Version None)
Quarter: 2010Q4

REPORT INFORMATION
  Report Type: 
  Country: None (occurrence: None)
  Receive Date: 20101228
  Receipt Date: 20101217
  Transmission Date: 20110411
  Serious: Yes (Hospitalization)
  Sender: FDA-Public Use
  Company Number: CA-JNJCH-2010029474

PATIENT
  Age: 46 Year
  Sex: Female
  Weight: 68 kg

DRUGS (2)
  1. KIRKLAND SIGNATURE 5% [Suspect]
     Indication: ALOPECIA
     Dosage: TEXT:ONE MILLILITER TWICE DAILY
     Route: 061
     Dates: start: 20101020, end: 20101216
  2. MACROBID [Suspect]
     Indication: URINARY TRACT INFECTION
     Dosage: TEXT:UNKNOWN
     Route: 065
     Dates: start: 20101209, end: 20101214

REACTIONS (10)
  - BURNING SENSATION [None]
  - DYSPNOEA [None]
  - INFLAMMATION [None]
  - OEDEMA PERIPHERAL [None]
  - PAIN IN EXTREMITY [None]
  - RASH [None]
  - RASH MACULAR [None]
  - URINARY TRACT INFECTION [None]
  - URTICARIA [None]
  - WRONG DRUG ADMINISTERED [None]
